FAERS Safety Report 11602757 (Version 1)
Quarter: 2015Q4

REPORT INFORMATION
  Report Type: Spontaneous
  Country: US (occurrence: US)
  Receive Date: 20151006
  Receipt Date: 20151006
  Transmission Date: 20160304
  Serious: No
  Sender: FDA-Public Use
  Company Number: US-AMGEN-USASP2015074106

PATIENT
  Age: 58 Year
  Sex: Female
  Weight: 72.5 kg

DRUGS (1)
  1. PROLIA [Suspect]
     Active Substance: DENOSUMAB
     Indication: PRODUCT USED FOR UNKNOWN INDICATION
     Dosage: 60 MG/ML, UNK
     Route: 058

REACTIONS (2)
  - Injection site haemorrhage [Unknown]
  - Accidental exposure to product [Unknown]

NARRATIVE: CASE EVENT DATE: 201507
